FAERS Safety Report 5331659-2 (Version None)
Quarter: 2007Q2

REPORT INFORMATION
  Report Type: 
  Country: None (occurrence: None)
  Receive Date: 20070522
  Receipt Date: 20070507
  Transmission Date: 20071010
  Serious: Yes (Hospitalization)
  Sender: FDA-Public Use
  Company Number: PH-PFIZER INC-2007039609

PATIENT
  Sex: Female

DRUGS (9)
  1. MEDROL [Suspect]
     Indication: BRONCHIAL HYPERREACTIVITY
  2. MEDROL [Suspect]
     Indication: PLEURAL EFFUSION
  3. COAPROVEL [Concomitant]
  4. ACETYLSALICYLIC ACID SRT [Concomitant]
  5. MONTELUKAST SODIUM [Concomitant]
  6. FLUIMUCIL [Concomitant]
  7. CIPROFLOXACIN [Concomitant]
  8. FLIXOTIDE ^GLAXO^ [Concomitant]
  9. COMBIVENT [Concomitant]

REACTIONS (1)
  - HYPONATRAEMIA [None]
